FAERS Safety Report 12916088 (Version 1)
Quarter: 2016Q4

REPORT INFORMATION
  Report Type: Spontaneous
  Country: US (occurrence: US)
  Receive Date: 20161104
  Receipt Date: 20161104
  Transmission Date: 20170207
  Serious: Yes (Other)
  Sender: FDA-Public Use
  Company Number: US-SAOL THERAPEUTICS-2016SAO00977

PATIENT
  Sex: Male

DRUGS (3)
  1. BACLOFEN. [Suspect]
     Active Substance: BACLOFEN
     Indication: MUSCLE SPASTICITY
     Dosage: 900 ?G, \DAY
     Route: 037
     Dates: start: 2015
  2. BACLOFEN. [Suspect]
     Active Substance: BACLOFEN
     Dosage: 230 ?G, \DAY
     Route: 037
     Dates: start: 2015, end: 201609
  3. BACLOFEN. [Suspect]
     Active Substance: BACLOFEN
     Dosage: 275 ?G, \DAY
     Route: 037
     Dates: start: 201609

REACTIONS (4)
  - Hyperhidrosis [Recovered/Resolved]
  - Drug withdrawal syndrome [Recovered/Resolved]
  - Drug titration error [Recovered/Resolved]
  - Muscle spasticity [Unknown]

NARRATIVE: CASE EVENT DATE: 201609
